FAERS Safety Report 23050192 (Version 2)
Quarter: 2023Q4

REPORT INFORMATION
  Report Type: Spontaneous
  Country: JP (occurrence: JP)
  Receive Date: 20231010
  Receipt Date: 20231028
  Transmission Date: 20240109
  Serious: No
  Sender: FDA-Public Use
  Company Number: JP-UCBJ-CD202310351UCBPHAPROD

PATIENT

DRUGS (2)
  1. LEVETIRACETAM [Suspect]
     Active Substance: LEVETIRACETAM
     Indication: Partial seizures
     Dosage: UNK, 2X/DAY (BID) 10 O^CLOCK IN THE MORNING AND 10 O^CLOCK IN THE EVENING
     Route: 041
  2. LEVETIRACETAM [Suspect]
     Active Substance: LEVETIRACETAM
     Indication: Generalised tonic-clonic seizure
     Dosage: 500 MILLIGRAM, 2X/DAY (BID)
     Route: 041

REACTIONS (2)
  - Off label use [Unknown]
  - Therapeutic response decreased [Unknown]
